FAERS Safety Report 17187530 (Version 2)
Quarter: 2020Q1

REPORT INFORMATION
  Report Type: Report from Study
  Country: US (occurrence: US)
  Receive Date: 20191220
  Receipt Date: 20200131
  Transmission Date: 20200409
  Serious: Yes (Hospitalization)
  Sender: FDA-Public Use
  Company Number: NVSC2019US030356

PATIENT
  Sex: Male

DRUGS (1)
  1. ENTRESTO [Suspect]
     Active Substance: SACUBITRIL\VALSARTAN
     Indication: CARDIAC FAILURE CHRONIC
     Dosage: UNK
     Route: 065

REACTIONS (7)
  - Malaise [Unknown]
  - Orthostatic hypotension [Unknown]
  - Dizziness [Unknown]
  - Poor peripheral circulation [Unknown]
  - Weight decreased [Unknown]
  - Feeling of relaxation [Unknown]
  - Dyspnoea [Unknown]
